FAERS Safety Report 17989164 (Version 1)
Quarter: 2020Q3

REPORT INFORMATION
  Report Type: Spontaneous
  Country: CO (occurrence: CO)
  Receive Date: 20200707
  Receipt Date: 20200707
  Transmission Date: 20201103
  Serious: Yes (Death, Other)
  Sender: FDA-Public Use
  Company Number: CO-ASTRAZENECA-2020SE84850

PATIENT
  Age: 51 Year
  Sex: Male

DRUGS (4)
  1. OSIMERTINIB. [Suspect]
     Active Substance: OSIMERTINIB
     Indication: NON-SMALL CELL LUNG CANCER
     Dosage: UNKNOWN
     Route: 048
  2. CARBOPLATIN. [Interacting]
     Active Substance: CARBOPLATIN
     Indication: SMALL CELL LUNG CANCER
     Dosage: UNKNOWN
     Route: 065
  3. ETOPOSIDE. [Suspect]
     Active Substance: ETOPOSIDE
  4. ATEZOLIZUMAB. [Suspect]
     Active Substance: ATEZOLIZUMAB

REACTIONS (3)
  - Small cell lung cancer [Unknown]
  - Malignant transformation [Unknown]
  - Malignant neoplasm progression [Fatal]
